FAERS Safety Report 17870108 (Version 2)
Quarter: 2020Q3

REPORT INFORMATION
  Report Type: Spontaneous
  Country: US (occurrence: US)
  Receive Date: 20200608
  Receipt Date: 20200914
  Transmission Date: 20201103
  Serious: No
  Sender: FDA-Public Use
  Company Number: US-SA-2020SA145876

PATIENT

DRUGS (3)
  1. ARMODAFINIL. [Concomitant]
     Active Substance: ARMODAFINIL
  2. DUPIXENT [Suspect]
     Active Substance: DUPILUMAB
     Dosage: 300 MG,OTHER
     Route: 058
     Dates: start: 201902
  3. DUPIXENT [Suspect]
     Active Substance: DUPILUMAB
     Dosage: 200 MG,OTHER
     Route: 057
     Dates: start: 201902

REACTIONS (3)
  - Agitation [Unknown]
  - Product use issue [Unknown]
  - Flushing [Unknown]

NARRATIVE: CASE EVENT DATE: 201902
